FAERS Safety Report 18948762 (Version 2)
Quarter: 2021Q1

REPORT INFORMATION
  Report Type: Spontaneous
  Country: US (occurrence: US)
  Receive Date: 20210226
  Receipt Date: 20210318
  Transmission Date: 20210420
  Serious: Yes (Hospitalization, Other)
  Sender: FDA-Public Use
  Company Number: US-BAXTER-2021BAX003967

PATIENT
  Age: 64 Year
  Sex: Female

DRUGS (6)
  1. IFEX [Suspect]
     Active Substance: IFOSFAMIDE
     Indication: LEIOMYOSARCOMA
     Route: 065
  2. OLARATUMAB [Concomitant]
     Active Substance: OLARATUMAB
     Indication: LEIOMYOSARCOMA
     Dosage: (CYCLICAL)
     Route: 065
  3. GEMCITABINE. [Concomitant]
     Active Substance: GEMCITABINE
     Indication: LEIOMYOSARCOMA
     Dosage: CYCLICAL
     Route: 065
  4. LETROZOLE. [Concomitant]
     Active Substance: LETROZOLE
     Indication: LEIOMYOSARCOMA
     Dosage: CYCLICAL
     Route: 065
  5. DOCETAXEL. [Concomitant]
     Active Substance: DOCETAXEL
     Indication: LEIOMYOSARCOMA
     Dosage: CYCLICAL
     Route: 065
  6. DOXORUBICIN [Concomitant]
     Active Substance: DOXORUBICIN
     Indication: LEIOMYOSARCOMA
     Dosage: CYLICAL
     Route: 065

REACTIONS (7)
  - Fanconi syndrome [Recovering/Resolving]
  - Nephrogenic diabetes insipidus [Recovering/Resolving]
  - Mucosal inflammation [Unknown]
  - Tachycardia [Recovering/Resolving]
  - Nephropathy toxic [Recovering/Resolving]
  - Acidosis [Recovering/Resolving]
  - Skin turgor decreased [Unknown]
